FAERS Safety Report 7692462-1 (Version None)
Quarter: 2011Q3

REPORT INFORMATION
  Report Type: 
  Country: None (occurrence: None)
  Receive Date: 20110818
  Receipt Date: 20110503
  Transmission Date: 20111222
  Serious: No
  Sender: FDA-Public Use
  Company Number: US-ALLERGAN-1106058US

PATIENT
  Age: 69 Year
  Sex: Female

DRUGS (2)
  1. PRED FORTEA? [Concomitant]
     Indication: CATARACT OPERATION
     Dosage: 1 GTT, QID
     Route: 047
  2. ACUVAIL [Suspect]
     Indication: CATARACT
     Dosage: 1 GTT, BID
     Route: 047
     Dates: start: 20110418

REACTIONS (1)
  - EYE IRRITATION [None]
